FAERS Safety Report 15525458 (Version 1)
Quarter: 2018Q4

REPORT INFORMATION
  Report Type: Spontaneous
  Country: CN (occurrence: CN)
  Receive Date: 20181018
  Receipt Date: 20181018
  Transmission Date: 20190205
  Serious: Yes (Other)
  Sender: FDA-Public Use
  Company Number: CN-MYLANLABS-2018M1076653

PATIENT
  Age: 19 Year
  Sex: Male

DRUGS (1)
  1. DEXAMETHASONE. [Suspect]
     Active Substance: DEXAMETHASONE
     Indication: ADRENOGENITAL SYNDROME
     Dosage: ADMINISTERED FOR OVER 10 YEARS WITHOUT FOLLOW-UP OR DOSE TITRATION
     Route: 065

REACTIONS (11)
  - Body tinea [Unknown]
  - Weight increased [Recovering/Resolving]
  - Hyperlipidaemia [Unknown]
  - Hepatic steatosis [Unknown]
  - Cushing^s syndrome [Recovering/Resolving]
  - Adrenal atrophy [Unknown]
  - Overdose [Recovering/Resolving]
  - Hypertension [Recovered/Resolved]
  - Hyperuricaemia [Unknown]
  - Hyperinsulinaemia [Unknown]
  - Body height below normal [Unknown]
